FAERS Safety Report 9014798 (Version 1)
Quarter: 2013Q1

REPORT INFORMATION
  Report Type: Report from Study
  Country: JP (occurrence: JP)
  Receive Date: 20130115
  Receipt Date: 20130115
  Transmission Date: 20140127
  Serious: Yes (Hospitalization)
  Sender: FDA-Public Use
  Company Number: JP-009507513-2012SP020539

PATIENT
  Age: 65 Year
  Sex: Male
  Weight: 60 kg

DRUGS (5)
  1. PEGINTERFERON ALFA-2B [Suspect]
     Indication: CHRONIC HEPATITIS C
     Dosage: 1.5 ?G/KG, QW DAILY DOSE UNKNOWN
     Route: 058
     Dates: start: 20120222, end: 20120328
  2. REBETOL [Suspect]
     Indication: CHRONIC HEPATITIS C
     Dosage: 600 MG, QD
     Route: 048
     Dates: start: 20120222, end: 20120313
  3. REBETOL [Suspect]
     Dosage: 400 MG, QD
     Route: 048
     Dates: start: 20120321, end: 20120327
  4. TELAVIC [Suspect]
     Indication: CHRONIC HEPATITIS C
     Dosage: 2250 MG, QD
     Route: 048
     Dates: start: 20120222, end: 20120327
  5. LOXOMARIN [Concomitant]
     Indication: CHRONIC HEPATITIS C
     Dosage: UPDATE (14JUN2012): ADMINISTRATION DURATION
     Route: 048
     Dates: start: 20120222, end: 20120326

REACTIONS (1)
  - Anaemia [Not Recovered/Not Resolved]
